FAERS Safety Report 20469118 (Version 1)
Quarter: 2022Q1

REPORT INFORMATION
  Report Type: Report from Study
  Country: US (occurrence: US)
  Receive Date: 20220214
  Receipt Date: 20220214
  Transmission Date: 20220423
  Serious: No
  Sender: FDA-Public Use
  Company Number: US-HRARD-2021000216

PATIENT
  Sex: Female

DRUGS (2)
  1. LYSODREN [Suspect]
     Active Substance: MITOTANE
     Route: 048
     Dates: start: 20200429
  2. LYSODREN [Suspect]
     Active Substance: MITOTANE
     Dosage: 1000 MG THREE TIMES A DAY (TID)
     Route: 048
     Dates: start: 20201230

REACTIONS (4)
  - Dyspepsia [Recovered/Resolved]
  - Nausea [Unknown]
  - Diarrhoea [Recovered/Resolved]
  - Hot flush [Not Recovered/Not Resolved]

NARRATIVE: CASE EVENT DATE: 20210101
